FAERS Safety Report 4815313-9 (Version None)
Quarter: 2005Q4

REPORT INFORMATION
  Report Type: 
  Country: None (occurrence: None)
  Receive Date: 20051027
  Receipt Date: 20051013
  Transmission Date: 20060501
  Serious: Yes (Other)
  Sender: FDA-Public Use
  Company Number: 2005143209

PATIENT
  Age: 44 Year
  Sex: Female
  Weight: 67.586 kg

DRUGS (1)
  1. BENADRYL [Suspect]
     Indication: URTICARIA CHRONIC
     Dosage: 3 ULTRATABS DAILY, ORAL
     Route: 048
     Dates: start: 20050801, end: 20051011

REACTIONS (2)
  - HEADACHE [None]
  - PSYCHOTIC DISORDER [None]
